FAERS Safety Report 9156850 (Version 1)
Quarter: 2013Q1

REPORT INFORMATION
  Report Type: Spontaneous
  Country: US (occurrence: None)
  Receive Date: 20130212
  Receipt Date: 20130212
  Transmission Date: 20140127
  Serious: Yes (Other)
  Sender: FDA-Public Use
  Company Number: E2B_00000579

PATIENT
  Age: 74 Year
  Sex: Female
  Weight: 58.97 kg

DRUGS (5)
  1. LISINOPRIL [Suspect]
     Dates: start: 201209
  2. METOPROLOL (TABLETS) [Concomitant]
  3. ASPIRIN (TABLETS) [Concomitant]
  4. ROSUVASTATIN CALCIUM (CRESTOR) (TAB) [Concomitant]
  5. HYDROCHLOROTHIAZIDE (CAPSULE) [Concomitant]

REACTIONS (3)
  - Thirst [None]
  - Drug ineffective [None]
  - Blood pressure increased [None]
